FAERS Safety Report 18893228 (Version 1)
Quarter: 2021Q1

REPORT INFORMATION
  Report Type: Spontaneous
  Country: CZ (occurrence: CZ)
  Receive Date: 20210215
  Receipt Date: 20210215
  Transmission Date: 20210420
  Serious: Yes (Death, Hospitalization)
  Sender: FDA-Public Use
  Company Number: CZ-ROCHE-2765420

PATIENT
  Age: 65 Year
  Sex: Female
  Weight: 84 kg

DRUGS (1)
  1. MABTHERA [Suspect]
     Active Substance: RITUXIMAB
     Indication: NEUROMYELITIS OPTICA SPECTRUM DISORDER
     Dosage: 1 G EVERY 14 DAYS AND LATER EVERY 6 MONTHS ? BOLUS THERAPY?MOST RECENT DOSE ON 04/JAN/2021
     Route: 042
     Dates: start: 20171019

REACTIONS (1)
  - COVID-19 pneumonia [Fatal]

NARRATIVE: CASE EVENT DATE: 20210107
